FAERS Safety Report 18210859 (Version 3)
Quarter: 2020Q4

REPORT INFORMATION
  Report Type: Spontaneous
  Country: US (occurrence: US)
  Receive Date: 20200830
  Receipt Date: 20201025
  Transmission Date: 20210113
  Serious: No
  Sender: FDA-Public Use
  Company Number: US-AMGEN INC.-USASP2020139248

PATIENT
  Age: 58 Year
  Sex: Female

DRUGS (2)
  1. RIMEGEPANT. [Concomitant]
     Active Substance: RIMEGEPANT
     Indication: PROPHYLAXIS
     Dosage: UNK MILLIGRAM, UNK
     Route: 048
  2. ERENUMAB [Suspect]
     Active Substance: ERENUMAB
     Indication: MIGRAINE
     Dosage: UNK
     Route: 065

REACTIONS (1)
  - Dizziness [Recovered/Resolved]
